FAERS Safety Report 8607900 (Version 2)
Quarter: 2013Q3

REPORT INFORMATION
  Report Type: Spontaneous
  Country: US (occurrence: US)
  Receive Date: 20120611
  Receipt Date: 20130809
  Transmission Date: 20140515
  Serious: Yes (Disabling)
  Sender: FDA-Public Use
  Company Number: US-ASTRAZENECA-2012SE34906

PATIENT
  Age: 65 Year
  Sex: Male

DRUGS (16)
  1. NEXIUM [Suspect]
     Indication: GASTROOESOPHAGEAL REFLUX DISEASE
     Dosage: ONCE A DAY AT BED TIME
     Route: 048
  2. NEXIUM [Suspect]
     Indication: HIATUS HERNIA
     Dosage: ONCE A DAY AT BED TIME
     Route: 048
  3. NEXIUM [Suspect]
     Indication: DYSPEPSIA
     Dosage: ONCE A DAY AT BED TIME
     Route: 048
  4. NEXIUM [Suspect]
     Indication: CHEST PAIN
     Dosage: ONCE A DAY AT BED TIME
     Route: 048
  5. NEXIUM [Suspect]
     Indication: GASTROOESOPHAGEAL REFLUX DISEASE
     Route: 048
     Dates: start: 20100831
  6. NEXIUM [Suspect]
     Indication: HIATUS HERNIA
     Route: 048
     Dates: start: 20100831
  7. NEXIUM [Suspect]
     Indication: DYSPEPSIA
     Route: 048
     Dates: start: 20100831
  8. NEXIUM [Suspect]
     Indication: CHEST PAIN
     Route: 048
     Dates: start: 20100831
  9. PREVACID [Concomitant]
     Indication: GASTROOESOPHAGEAL REFLUX DISEASE
  10. ZANTAC [Concomitant]
  11. TAGAMET [Concomitant]
  12. FLOMAX [Concomitant]
     Indication: PROSTATIC DISORDER
     Dates: start: 20100514
  13. PROSCAR [Concomitant]
     Indication: PROSTATIC DISORDER
     Dates: start: 20091214
  14. NIASPAN [Concomitant]
     Indication: BLOOD CHOLESTEROL ABNORMAL
     Dates: start: 20100628
  15. PLAVIX [Concomitant]
     Dates: start: 20100831
  16. SULFAMETHOXAZOLE- TMP [Concomitant]
     Dosage: 800/160MG
     Dates: start: 20110726

REACTIONS (14)
  - Thermal burn [Unknown]
  - Osteoporosis [Unknown]
  - Rib fracture [Unknown]
  - Tooth fracture [Unknown]
  - Neck pain [Unknown]
  - Back pain [Unknown]
  - Angina pectoris [Unknown]
  - Arthritis [Unknown]
  - Cataract [Unknown]
  - Chronic obstructive pulmonary disease [Unknown]
  - Pain [Unknown]
  - Asthenia [Unknown]
  - Musculoskeletal pain [Unknown]
  - Cervical spine flattening [Unknown]
